FAERS Safety Report 6648600-2 (Version None)
Quarter: 2010Q1

REPORT INFORMATION
  Report Type: 
  Country: None (occurrence: None)
  Receive Date: 20100324
  Receipt Date: 20100316
  Transmission Date: 20100710
  Serious: Yes (Hospitalization)
  Sender: FDA-Public Use
  Company Number: JP-SANOFI-AVENTIS-2010SA004190

PATIENT
  Age: 52 Year
  Sex: Female

DRUGS (3)
  1. ALLEGRA [Suspect]
     Route: 065
     Dates: start: 20081201, end: 20081201
  2. ANTIBIOTICS [Suspect]
  3. ALL OTHER THERAPEUTIC PRODUCTS [Suspect]

REACTIONS (1)
  - LIVER DISORDER [None]
